FAERS Safety Report 10785073 (Version 1)
Quarter: 2015Q1

REPORT INFORMATION
  Report Type: Spontaneous
  Country: US (occurrence: US)
  Receive Date: 20150211
  Receipt Date: 20150211
  Transmission Date: 20150721
  Serious: No
  Sender: FDA-Public Use
  Company Number: US-GLAXOSMITHKLINE-A1082844A

PATIENT

DRUGS (2)
  1. TREXIMET [Suspect]
     Active Substance: NAPROXEN SODIUM\SUMATRIPTAN SUCCINATE
     Indication: PRODUCT USED FOR UNKNOWN INDICATION
     Dosage: 85/500 MG
     Route: 065
     Dates: start: 20091007
  2. LAMICTAL [Suspect]
     Active Substance: LAMOTRIGINE
     Indication: PRODUCT USED FOR UNKNOWN INDICATION
     Dosage: 25 MG100 MG, STARTED 31JAN2014200 MG STARTED 08MAY2014
     Route: 065
     Dates: start: 20131210

REACTIONS (1)
  - Mental disorder [Not Recovered/Not Resolved]
